FAERS Safety Report 9797412 (Version 1)
Quarter: 2014Q1

REPORT INFORMATION
  Report Type: Spontaneous
  Country: FR (occurrence: FR)
  Receive Date: 20140106
  Receipt Date: 20140106
  Transmission Date: 20141002
  Serious: Yes (Hospitalization)
  Sender: FDA-Public Use
  Company Number: PHHY2013FR154112

PATIENT
  Age: 80 Year
  Sex: Male

DRUGS (13)
  1. VOLTARENE LP [Suspect]
     Dosage: 100 MG, QD
     Route: 048
     Dates: start: 20131017, end: 20131101
  2. ASPEGIC /FRA/ [Suspect]
     Dosage: 100 MG, QD
     Route: 042
     Dates: start: 20131026
  3. KARDEGIC [Suspect]
     Dosage: 75 MG, QD
     Route: 048
     Dates: start: 20131101, end: 20131107
  4. LOVENOX [Concomitant]
     Dosage: 4000 IU, QD
     Route: 058
     Dates: start: 20131019
  5. AMLODIPINE [Concomitant]
     Dosage: UNK UKN, UNK
  6. LAMALINE [Concomitant]
     Dosage: UNK UKN, UNK
  7. COAPROVEL [Concomitant]
     Dosage: UNK UKN, UNK
     Dates: start: 20131020
  8. CRESTOR [Concomitant]
     Dosage: UNK UKN, UNK
     Dates: start: 20131022
  9. MOVICOL [Concomitant]
     Dosage: UNK UKN, UNK
     Dates: start: 20131025
  10. DIFFU K [Concomitant]
     Dosage: UNK UKN, UNK
     Dates: start: 20131025
  11. LOXEN [Concomitant]
     Dosage: UNK UKN, UNK
     Dates: start: 20131026
  12. EUPRESSYL [Concomitant]
     Dosage: UNK UKN, UNK
     Dates: start: 20131029
  13. AUGMENTIN [Concomitant]
     Dosage: UNK UKN, UNK
     Dates: start: 20131030

REACTIONS (4)
  - Duodenitis [Unknown]
  - Haemorrhagic anaemia [Unknown]
  - Duodenal ulcer haemorrhage [Unknown]
  - Melaena [Unknown]
